FAERS Safety Report 13523011 (Version 2)
Quarter: 2017Q4

REPORT INFORMATION
  Report Type: Spontaneous
  Country: US (occurrence: US)
  Receive Date: 20170508
  Receipt Date: 20171207
  Transmission Date: 20180320
  Serious: No
  Sender: FDA-Public Use
  Company Number: US-VIFOR (INTERNATIONAL) INC.-VIT-2017-00851

PATIENT
  Age: 63 Year
  Sex: Male

DRUGS (20)
  1. VICTOZA [Concomitant]
     Active Substance: LIRAGLUTIDE
  2. ZETIA [Concomitant]
     Active Substance: EZETIMIBE
  3. AMLODIPINE [Concomitant]
     Active Substance: AMLODIPINE BESYLATE
  4. FLOMAX [Concomitant]
     Active Substance: TAMSULOSIN HYDROCHLORIDE
  5. MIRAPEX [Concomitant]
     Active Substance: PRAMIPEXOLE DIHYDROCHLORIDE
  6. NOVOLOG [Concomitant]
     Active Substance: INSULIN ASPART
  7. PROCARDIA XL [Concomitant]
     Active Substance: NIFEDIPINE
  8. VELTASSA [Suspect]
     Active Substance: PATIROMER
     Dosage: ONE PACKET IN 3 OZ OF WATER
     Route: 048
     Dates: start: 20160707
  9. ALPRAZOLAM. [Concomitant]
     Active Substance: ALPRAZOLAM
  10. COENZYME Q10 [Concomitant]
     Active Substance: UBIDECARENONE
  11. RENALTAB [Concomitant]
  12. LOSARTAN. [Concomitant]
     Active Substance: LOSARTAN
  13. LOVAZA [Concomitant]
     Active Substance: OMEGA-3-ACID ETHYL ESTERS
  14. COLECALCIFEROL [Concomitant]
     Active Substance: CHOLECALCIFEROL
  15. VELTASSA [Suspect]
     Active Substance: PATIROMER
     Indication: HYPERKALAEMIA
     Dosage: ONE PACKET IN 3 OZ OF WATER
     Route: 048
     Dates: start: 20160815
  16. CRANBERRY TAB [Concomitant]
  17. DULOXETINE. [Concomitant]
     Active Substance: DULOXETINE
  18. METOPROLOL TARTRATE. [Concomitant]
     Active Substance: METOPROLOL TARTRATE
  19. LANTUS [Concomitant]
     Active Substance: INSULIN GLARGINE
  20. NORCO [Concomitant]
     Active Substance: ACETAMINOPHEN\HYDROCODONE BITARTRATE

REACTIONS (3)
  - Abdominal pain [Not Recovered/Not Resolved]
  - Flatulence [Not Recovered/Not Resolved]
  - Dyspepsia [Unknown]

NARRATIVE: CASE EVENT DATE: 20170110
